FAERS Safety Report 4816014-3 (Version None)
Quarter: 2005Q4

REPORT INFORMATION
  Report Type: 
  Country: None (occurrence: None)
  Receive Date: 20051026
  Receipt Date: 20051017
  Transmission Date: 20060501
  Serious: Yes (Disabling)
  Sender: FDA-Public Use
  Company Number: TAP2005Q01859

PATIENT
  Age: 46 Year
  Sex: Female
  Weight: 57.7 kg

DRUGS (3)
  1. LUPRON DEPOT [Suspect]
     Indication: ENDOMETRIOSIS
     Dosage: 3.75 MG, 1 IN 1 M, INJCETION
     Dates: start: 20030926, end: 20040201
  2. PAXIL [Concomitant]
  3. PRILOSEC [Concomitant]

REACTIONS (9)
  - CLOSED HEAD INJURY [None]
  - FATIGUE [None]
  - IMPAIRED WORK ABILITY [None]
  - MIGRAINE [None]
  - NAUSEA [None]
  - ROAD TRAFFIC ACCIDENT [None]
  - SYNCOPE [None]
  - VOMITING [None]
  - WEIGHT DECREASED [None]
